FAERS Safety Report 7402360-6 (Version None)
Quarter: 2011Q1

REPORT INFORMATION
  Report Type: 
  Country: None (occurrence: None)
  Receive Date: 20110331
  Receipt Date: 20110316
  Transmission Date: 20110831
  Serious: Yes (Other)
  Sender: FDA-Public Use
  Company Number: 1000019169

PATIENT
  Age: 66 Year
  Sex: Male
  Weight: 90 kg

DRUGS (4)
  1. SALBUTAMOL (SALBUTAMOL) (SALBUTAMOL) [Concomitant]
  2. SYMBICORT (BUDESONIDE, FORMOTEROL FUMARATE) (BUDESONIDE, FORMOTEROL FU [Concomitant]
  3. ROFLUMILAST (ROFLUMILAST) (TABLETS) [Suspect]
     Indication: CHRONIC OBSTRUCTIVE PULMONARY DISEASE
     Dates: start: 20110210, end: 20110225
  4. ATROVENT (IPRATROPIUM BROMIDE) (IPRATROPIUM BROMIDE) [Concomitant]

REACTIONS (3)
  - DYSPNOEA [None]
  - MALAISE [None]
  - TREMOR [None]
